FAERS Safety Report 4733764-8 (Version None)
Quarter: 2005Q3

REPORT INFORMATION
  Report Type: 
  Country: None (occurrence: None)
  Receive Date: 20050729
  Receipt Date: 20050712
  Transmission Date: 20060218
  Serious: Yes (Hospitalization)
  Sender: FDA-Public Use
  Company Number: AU_050708714

PATIENT
  Age: 55 Year
  Sex: Male

DRUGS (4)
  1. CIALIS [Suspect]
     Indication: ERECTILE DYSFUNCTION
     Dosage: 10 MG AS NEEDED
     Dates: start: 20050101
  2. ATACAND [Concomitant]
  3. LIPITOR [Concomitant]
  4. DICLOFENAC [Concomitant]

REACTIONS (2)
  - ARACHNOID CYST [None]
  - GLOBAL AMNESIA [None]
